FAERS Safety Report 6701115-5 (Version None)
Quarter: 2010Q2

REPORT INFORMATION
  Report Type: 
  Country: None (occurrence: None)
  Receive Date: 20100428
  Receipt Date: 20100428
  Transmission Date: 20101027
  Serious: Yes (Other)
  Sender: FDA-Public Use
  Company Number: None

PATIENT
  Age: 29 Year
  Sex: Female
  Weight: 74.8435 kg

DRUGS (1)
  1. WELLBUTRIN SR [Suspect]
     Indication: DYSTHYMIC DISORDER
     Dosage: 150MG SR INITIALLY THEN TITRAT QD PO
     Route: 048
     Dates: start: 19990101, end: 20100401

REACTIONS (10)
  - DEPRESSED LEVEL OF CONSCIOUSNESS [None]
  - DIZZINESS [None]
  - FAMILY STRESS [None]
  - FATIGUE [None]
  - IMPAIRED WORK ABILITY [None]
  - MEMORY IMPAIRMENT [None]
  - MIGRAINE [None]
  - MOOD ALTERED [None]
  - MYALGIA [None]
  - SOCIAL PROBLEM [None]
